FAERS Safety Report 21559108 (Version 1)
Quarter: 2022Q4

REPORT INFORMATION
  Report Type: Spontaneous
  Country: US (occurrence: US)
  Receive Date: 20221107
  Receipt Date: 20221107
  Transmission Date: 20230113
  Serious: Yes (Other)
  Sender: FDA-Public Use
  Company Number: US-BRISTOL-MYERS SQUIBB COMPANY-2022-132213

PATIENT
  Age: 23 Year
  Sex: Male

DRUGS (2)
  1. ORENCIA [Suspect]
     Active Substance: ABATACEPT
     Indication: Juvenile idiopathic arthritis
     Dosage: STRENGTH: 125 MG/ML
     Route: 058
     Dates: start: 20220601
  2. ORENCIA [Suspect]
     Active Substance: ABATACEPT
     Dosage: STRENGTH: 125 MG/ML
     Route: 058

REACTIONS (2)
  - Leukopenia [Unknown]
  - Off label use [Unknown]
